FAERS Safety Report 17545789 (Version 1)
Quarter: 2020Q1

REPORT INFORMATION
  Report Type: Spontaneous
  Country: GB (occurrence: GB)
  Receive Date: 20200316
  Receipt Date: 20200316
  Transmission Date: 20200409
  Serious: Yes (Disabling, Other)
  Sender: FDA-Public Use
  Company Number: GB-SUN PHARMACEUTICAL INDUSTRIES LTD-2020RR-240541

PATIENT
  Sex: Female

DRUGS (1)
  1. LETROZOLE. [Suspect]
     Active Substance: LETROZOLE
     Indication: PROPHYLAXIS
     Dosage: 2.5 MILLIGRAM, DAILY
     Route: 048
     Dates: start: 20180601

REACTIONS (1)
  - Tenosynovitis stenosans [Recovered/Resolved with Sequelae]
